FAERS Safety Report 18526867 (Version 1)
Quarter: 2020Q4

REPORT INFORMATION
  Report Type: Report from Study
  Country: EG (occurrence: EG)
  Receive Date: 20201120
  Receipt Date: 20201120
  Transmission Date: 20210114
  Serious: Yes (Other)
  Sender: FDA-Public Use
  Company Number: EG-B.I. PHARMACEUTICALS,INC./RIDGEFIELD-2020-BI-062192

PATIENT

DRUGS (4)
  1. CLONIDINE. [Suspect]
     Active Substance: CLONIDINE
     Indication: ANALGESIC THERAPY
  2. CLONIDINE. [Suspect]
     Active Substance: CLONIDINE
     Indication: SEDATION
     Dosage: 0.5 UG/KG DISSOLVED IN A TOTAL OF 2 ML WITH NORMAL SALINE (NACL 0.9%).
  3. LEVOBUPIVACAINE [Concomitant]
     Active Substance: LEVOBUPIVACAINE
     Dosage: 0.3 ML/KG  (0.125%) WITH A MAXIMUM VOLUME OF 20 ML ON EACH SIDE.
  4. MIDAZOLAM. [Concomitant]
     Active Substance: MIDAZOLAM
     Dosage: 0.5 MG/KG ABOUT 20 MINUTES BEFORE THE INDUCTION OF GENERAL ANESTHESIA
     Route: 048

REACTIONS (2)
  - Orchidopexy [Unknown]
  - Post procedural pruritus [Unknown]
